FAERS Safety Report 24368235 (Version 5)
Quarter: 2025Q2

REPORT INFORMATION
  Report Type: Spontaneous
  Country: US (occurrence: US)
  Receive Date: 20240926
  Receipt Date: 20250622
  Transmission Date: 20250716
  Serious: No
  Sender: SANOFI AVENTIS
  Company Number: US-SA-2024SA273641

PATIENT
  Age: 83 Year
  Sex: Female

DRUGS (3)
  1. DUPIXENT [Suspect]
     Active Substance: DUPILUMAB
     Indication: Dermatitis atopic
     Dosage: 300 MG, QOW
     Route: 058
     Dates: start: 202405
  2. MELOXICAM [Suspect]
     Active Substance: MELOXICAM
     Indication: Dermatitis atopic
  3. MELOXICAM [Suspect]
     Active Substance: MELOXICAM
     Indication: Rash

REACTIONS (6)
  - Tremor [Unknown]
  - Balance disorder [Unknown]
  - Nausea [Unknown]
  - Dizziness [Unknown]
  - Dermatitis atopic [Recovering/Resolving]
  - Rash [Recovering/Resolving]

NARRATIVE: CASE EVENT DATE: 20240101
